FAERS Safety Report 9603679 (Version 1)
Quarter: 2013Q4

REPORT INFORMATION
  Report Type: Report from Study
  Country: US (occurrence: US)
  Receive Date: 20131007
  Receipt Date: 20131007
  Transmission Date: 20140711
  Serious: Yes (Other)
  Sender: FDA-Public Use
  Company Number: US-ROCHE-1280679

PATIENT
  Age: 60 Year
  Sex: Female
  Weight: 43.13 kg

DRUGS (5)
  1. ACTEMRA [Suspect]
     Indication: RHEUMATOID ARTHRITIS
     Route: 042
     Dates: start: 201304
  2. ACTEMRA [Suspect]
     Route: 042
  3. ACTEMRA [Suspect]
     Route: 042
     Dates: start: 201308
  4. ACTEMRA [Suspect]
     Route: 042
     Dates: start: 20130904, end: 20130904
  5. PREDNISONE [Concomitant]
     Route: 048
     Dates: start: 20130920

REACTIONS (20)
  - Hyperhidrosis [Not Recovered/Not Resolved]
  - Chills [Not Recovered/Not Resolved]
  - Stomatitis [Not Recovered/Not Resolved]
  - Urticaria [Recovered/Resolved]
  - Dizziness [Not Recovered/Not Resolved]
  - Heart rate increased [Not Recovered/Not Resolved]
  - Mental impairment [Unknown]
  - Fatigue [Unknown]
  - Decreased appetite [Unknown]
  - Headache [Unknown]
  - Dyspnoea [Unknown]
  - Tunnel vision [Unknown]
  - Red blood cell count decreased [Unknown]
  - Hearing impaired [Unknown]
  - Depression [Unknown]
  - Skin ulcer [Unknown]
  - Nausea [Unknown]
  - Slow speech [Unknown]
  - Dysarthria [Unknown]
  - Dizziness [Unknown]
